FAERS Safety Report 5776987-1 (Version None)
Quarter: 2008Q2

REPORT INFORMATION
  Report Type: 
  Country: None (occurrence: None)
  Receive Date: 20080616
  Receipt Date: 20080602
  Transmission Date: 20081010
  Serious: Yes (Death, Life-Threatening)
  Sender: FDA-Public Use
  Company Number: 2008SP001371

PATIENT
  Age: 81 Year
  Sex: Male

DRUGS (8)
  1. ALVESCO [Suspect]
     Indication: ASTHMA
     Dosage: INHALATION
     Route: 055
     Dates: start: 20060112, end: 20071015
  2. ACCOLATE [Concomitant]
  3. PREVACID [Concomitant]
  4. TIAZAC [Concomitant]
  5. ASPIRIN [Concomitant]
  6. ALTACE [Concomitant]
  7. LIPITOR [Concomitant]
  8. NITROGLYCERIN [Concomitant]

REACTIONS (1)
  - INFARCTION [None]
